FAERS Safety Report 8564276-1 (Version None)
Quarter: 2012Q3

REPORT INFORMATION
  Report Type: 
  Country: None (occurrence: None)
  Receive Date: 20120803
  Receipt Date: 20120727
  Transmission Date: 20120928
  Serious: Yes (Hospitalization, Other)
  Sender: FDA-Public Use
  Company Number: US-JNJFOC-20120714618

PATIENT
  Age: 60 Year
  Sex: Male

DRUGS (3)
  1. COUMADIN [Suspect]
     Indication: PRODUCT USED FOR UNKNOWN INDICATION
     Dates: start: 20120101
  2. XARELTO [Suspect]
     Indication: KNEE ARTHROPLASTY
     Route: 048
     Dates: start: 20120523, end: 20120601
  3. XARELTO [Suspect]
     Indication: PROPHYLAXIS
     Route: 048
     Dates: start: 20120523, end: 20120601

REACTIONS (2)
  - PULMONARY EMBOLISM [None]
  - HAEMORRHAGE [None]
